FAERS Safety Report 8114954-3 (Version None)
Quarter: 2012Q1

REPORT INFORMATION
  Report Type: 
  Country: None (occurrence: None)
  Receive Date: 20120206
  Receipt Date: 20120127
  Transmission Date: 20120608
  Serious: No
  Sender: FDA-Public Use
  Company Number: US-B.I. PHARMACEUTICALS,INC./RIDGEFIELD-2011-BP-12582BP

PATIENT
  Sex: Female

DRUGS (6)
  1. CALCIUM [Concomitant]
     Indication: PROPHYLAXIS
     Route: 048
  2. PRADAXA [Suspect]
     Indication: ATRIAL FIBRILLATION
     Dosage: 300 MG
     Route: 048
     Dates: start: 20110301
  3. POTASSIUM [Concomitant]
     Indication: SUPPLEMENTATION THERAPY
     Dosage: 20 MG
     Route: 048
  4. PRILOSEC [Concomitant]
     Indication: ABDOMINAL PAIN UPPER
     Route: 048
     Dates: start: 20100101
  5. METOPROLOL SUCCINATE [Concomitant]
     Indication: HYPERTENSION
     Dosage: 150 MG
     Route: 048
  6. NORVASC [Concomitant]
     Indication: HYPERTENSION
     Route: 048

REACTIONS (3)
  - DYSPEPSIA [None]
  - ABDOMINAL DISTENSION [None]
  - ERUCTATION [None]
